FAERS Safety Report 12066145 (Version 1)
Quarter: 2016Q1

REPORT INFORMATION
  Report Type: Spontaneous
  Country: US (occurrence: US)
  Receive Date: 20160210
  Receipt Date: 20160210
  Transmission Date: 20160526
  Serious: No
  Sender: FDA-Public Use
  Company Number: US-ALLERGAN-1526157US

PATIENT
  Sex: Female
  Weight: 126.98 kg

DRUGS (4)
  1. CELEBREX [Concomitant]
     Active Substance: CELECOXIB
     Indication: ARTHRITIS
  2. TOPAMAX [Concomitant]
     Active Substance: TOPIRAMATE
     Indication: NERVE INJURY
  3. BOTOX [Suspect]
     Active Substance: ONABOTULINUMTOXINA
     Indication: HYPERTONIC BLADDER
     Dosage: UNK, SINGLE
     Route: 043
     Dates: start: 20150924, end: 20150924
  4. HYDROCODONE [Concomitant]
     Active Substance: HYDROCODONE
     Indication: PAIN

REACTIONS (2)
  - Cystitis [Unknown]
  - Disturbance in sexual arousal [Unknown]

NARRATIVE: CASE EVENT DATE: 2015
